FAERS Safety Report 9993172 (Version 1)
Quarter: 2014Q1

REPORT INFORMATION
  Report Type: Report from Study
  Country: US (occurrence: US)
  Receive Date: 20140310
  Receipt Date: 20140310
  Transmission Date: 20141002
  Serious: No
  Sender: FDA-Public Use
  Company Number: US-ABBVIE-14P-163-1197063-00

PATIENT
  Age: 45 Year
  Sex: Female

DRUGS (7)
  1. LUPRON DEPOT [Suspect]
     Indication: ENDOMETRIOSIS
     Dates: start: 20131029, end: 20140129
  2. ZOLOFT [Concomitant]
     Indication: PRODUCT USED FOR UNKNOWN INDICATION
  3. ZOLOFT [Concomitant]
  4. WELLBUTRIN [Concomitant]
     Indication: PRODUCT USED FOR UNKNOWN INDICATION
  5. ATIVAN [Concomitant]
     Indication: INSOMNIA
  6. AYGESTIN [Concomitant]
     Indication: PRODUCT USED FOR UNKNOWN INDICATION
  7. AYGESTIN [Concomitant]

REACTIONS (2)
  - Depression [Not Recovered/Not Resolved]
  - Arthralgia [Unknown]
